FAERS Safety Report 11846644 (Version 1)
Quarter: 2015Q4

REPORT INFORMATION
  Report Type: Spontaneous
  Country: US (occurrence: US)
  Receive Date: 20151217
  Receipt Date: 20151217
  Transmission Date: 20160305
  Serious: No
  Sender: FDA-Public Use
  Company Number: US-ROCHE-1518998

PATIENT
  Sex: Female

DRUGS (1)
  1. TAMIFLU [Suspect]
     Active Substance: OSELTAMIVIR PHOSPHATE
     Indication: PRODUCT USED FOR UNKNOWN INDICATION
     Route: 065
     Dates: start: 20150105

REACTIONS (6)
  - Rash [Unknown]
  - Pyrexia [Unknown]
  - Malaise [Unknown]
  - Hyperhidrosis [Unknown]
  - Cough [Unknown]
  - Abdominal pain [Recovering/Resolving]
